FAERS Safety Report 21875253 (Version 1)
Quarter: 2023Q1

REPORT INFORMATION
  Report Type: Spontaneous
  Country: IT (occurrence: IT)
  Receive Date: 20230117
  Receipt Date: 20230117
  Transmission Date: 20230417
  Serious: Yes (Hospitalization)
  Sender: FDA-Public Use
  Company Number: IT-SLATE RUN PHARMACEUTICALS-23IT001467

PATIENT

DRUGS (5)
  1. DILTIAZEM HYDROCHLORIDE [Suspect]
     Active Substance: DILTIAZEM HYDROCHLORIDE
     Indication: Product used for unknown indication
     Dosage: 60 MILLIGRAM, SINGLE
     Route: 048
  2. PEMBROLIZUMAB [Concomitant]
     Active Substance: PEMBROLIZUMAB
     Indication: Malignant melanoma
  3. METHYLPREDNISOLONE [Concomitant]
     Active Substance: METHYLPREDNISOLONE
     Indication: Toxicity to various agents
     Dosage: 1 MILLIGRAM PER KILOGRAM, QD
     Route: 042
  4. PYRIDOSTIGMINE [Concomitant]
     Active Substance: PYRIDOSTIGMINE
     Indication: Toxicity to various agents
  5. OXYGEN [Concomitant]
     Active Substance: OXYGEN
     Indication: Oxygen therapy

REACTIONS (9)
  - Atrioventricular block complete [Unknown]
  - Sinoatrial block [Unknown]
  - Bundle branch block left [Unknown]
  - Pericardial effusion [Unknown]
  - Ventricular dysfunction [Unknown]
  - Bradycardia [Unknown]
  - Tachypnoea [Unknown]
  - Atrial fibrillation [Unknown]
  - Ventricular arrhythmia [Unknown]
